FAERS Safety Report 5247417-3 (Version None)
Quarter: 2007Q1

REPORT INFORMATION
  Report Type: 
  Country: None (occurrence: None)
  Receive Date: 20070220
  Receipt Date: 20070206
  Transmission Date: 20070707
  Serious: Yes (Hospitalization)
  Sender: FDA-Public Use
  Company Number: 230028M07USA

PATIENT
  Age: 62 Year
  Sex: Female

DRUGS (3)
  1. REBIF [Suspect]
     Indication: MULTIPLE SCLEROSIS
     Dosage: 44 MCG, 3 IN 1 WEEKS, SUBCUTANEOUS
     Route: 058
     Dates: start: 20050201
  2. BIDIL (ISOSORBIDE DINITRATE, COMBINATIONS) [Concomitant]
  3. LASIX [Concomitant]

REACTIONS (4)
  - ANAEMIA [None]
  - CHRONIC OBSTRUCTIVE PULMONARY DISEASE [None]
  - CONDITION AGGRAVATED [None]
  - PSEUDOMEMBRANOUS COLITIS [None]
